FAERS Safety Report 7398047-9 (Version None)
Quarter: 2011Q2

REPORT INFORMATION
  Report Type: 
  Country: None (occurrence: None)
  Receive Date: 20110406
  Receipt Date: 20110328
  Transmission Date: 20111010
  Serious: Yes (Hospitalization)
  Sender: FDA-Public Use
  Company Number: US-JNJFOC-20110205410

PATIENT
  Sex: Female
  Weight: 104.1 kg

DRUGS (2)
  1. INVEGA SUSTENNA [Suspect]
     Indication: PRODUCT USED FOR UNKNOWN INDICATION
     Route: 030
  2. INVEGA SUSTENNA [Suspect]
     Route: 030

REACTIONS (5)
  - RASH [None]
  - BLOOD PROLACTIN INCREASED [None]
  - STAPHYLOCOCCAL INFECTION [None]
  - INJECTION SITE NODULE [None]
  - PRODUCT QUALITY ISSUE [None]
